FAERS Safety Report 15525759 (Version 1)
Quarter: 2018Q4

REPORT INFORMATION
  Report Type: Spontaneous
  Country: None (occurrence: DE)
  Receive Date: 20181018
  Receipt Date: 20181018
  Transmission Date: 20190205
  Serious: Yes (Death, Life-Threatening, Other)
  Sender: FDA-Public Use
  Company Number: DE-BAXTER-2017BAX031796

PATIENT
  Age: 26 Day
  Sex: Female

DRUGS (18)
  1. MEROPENEM. [Concomitant]
     Active Substance: MEROPENEM
     Indication: SEPSIS NEONATAL
     Route: 065
  2. GENTAMICIN. [Concomitant]
     Active Substance: GENTAMICIN
     Indication: ANTIBIOTIC THERAPY
     Dosage: UNK UNK,UNK
     Route: 065
  3. FLUCLOXACILLIN [Concomitant]
     Active Substance: FLUCLOXACILLIN
     Indication: ANTIBIOTIC THERAPY
     Dosage: UNK UNK,UNK
     Route: 065
  4. FLUCONAZOL CLARIS 2 MG/ML INFUSIONSL?SUNG [Suspect]
     Active Substance: FLUCONAZOLE
     Indication: FUNGAL PERITONITIS
  5. LIPOSOMAL AMPHOTERICIN B [Suspect]
     Active Substance: AMPHOTERICIN B
     Indication: FUNGAL INFECTION
  6. AMPICILLIN [Concomitant]
     Active Substance: AMPICILLIN
     Indication: NEONATAL INFECTION
     Dosage: UNK UNK,UNK
     Route: 065
  7. MILRINONE [Concomitant]
     Active Substance: MILRINONE
     Indication: HYPOPLASTIC LEFT HEART SYNDROME
     Route: 065
  8. AMPICILLIN AND SULBACTAM [Concomitant]
     Active Substance: AMPICILLIN SODIUM\SULBACTAM SODIUM
     Indication: PROPHYLAXIS
     Route: 065
  9. PIPERACILLIN/TAZOBACTAM [Concomitant]
     Active Substance: PIPERACILLIN SODIUM\TAZOBACTAM SODIUM
     Indication: FUNGAL PERITONITIS
     Route: 065
  10. CASPOFUNGIN ACETATE. [Suspect]
     Active Substance: CASPOFUNGIN ACETATE
     Indication: FUNGAL INFECTION
  11. VANCOMYCIN [Concomitant]
     Active Substance: VANCOMYCIN
     Indication: SEPSIS NEONATAL
     Route: 065
  12. FLUCONAZOL CLARIS 2 MG/ML INFUSIONSL?SUNG [Suspect]
     Active Substance: FLUCONAZOLE
     Indication: FUNGAL INFECTION
     Dosage: UNK UNK,UNK
     Route: 065
  13. LIPOSOMAL AMPHOTERICIN B [Suspect]
     Active Substance: AMPHOTERICIN B
     Indication: FUNGAL PERITONITIS
     Route: 065
  14. CASPOFUNGIN ACETATE. [Suspect]
     Active Substance: CASPOFUNGIN ACETATE
     Indication: FUNGAL PERITONITIS
     Route: 065
  15. AMPICILLIN [Concomitant]
     Active Substance: AMPICILLIN
     Indication: ANTIBIOTIC PROPHYLAXIS
     Dosage: UNK UNK,UNK
     Route: 065
  16. GENTAMICIN. [Concomitant]
     Active Substance: GENTAMICIN
     Indication: NEONATAL INFECTION
     Dosage: UNK UNK,UNK
     Route: 065
  17. ALPROSTADIL. [Concomitant]
     Active Substance: ALPROSTADIL
     Indication: HYPOPLASTIC LEFT HEART SYNDROME
     Route: 065
  18. FLUCONAZOL CLARIS 2 MG/ML INFUSIONSL?SUNG [Suspect]
     Active Substance: FLUCONAZOLE
     Indication: SEPSIS NEONATAL
     Dosage: UNK UNK,UNK
     Route: 065

REACTIONS (8)
  - Peritonitis [Fatal]
  - Septic shock [Fatal]
  - Generalised oedema [Fatal]
  - Drug resistance [Fatal]
  - Capillary leak syndrome [Fatal]
  - Condition aggravated [Fatal]
  - Multiple organ dysfunction syndrome [Fatal]
  - Fungal infection [Fatal]
